FAERS Safety Report 6596892-0 (Version None)
Quarter: 2010Q1

REPORT INFORMATION
  Report Type: 
  Country: None (occurrence: None)
  Receive Date: 20100222
  Receipt Date: 20100222
  Transmission Date: 20100710
  Serious: Yes (Disabling)
  Sender: FDA-Public Use
  Company Number: None

PATIENT
  Sex: Female
  Weight: 45.3597 kg

DRUGS (1)
  1. SEROQUEL [Suspect]
     Indication: ANXIETY DISORDER
     Dosage: 150MG QD ORAL
     Route: 048
     Dates: start: 20000101, end: 20070101

REACTIONS (1)
  - ESSENTIAL TREMOR [None]
